FAERS Safety Report 9729533 (Version 3)
Quarter: 2015Q3

REPORT INFORMATION
  Report Type: Spontaneous
  Country: US (occurrence: US)
  Receive Date: 20131204
  Receipt Date: 20150804
  Transmission Date: 20151125
  Serious: No
  Sender: FDA-Public Use
  Company Number: US-GILEAD-2009-0021434

PATIENT
  Age: 61 Year
  Sex: Female

DRUGS (29)
  1. VENTOLIN [Concomitant]
     Active Substance: ALBUTEROL SULFATE
  2. ROXICET [Concomitant]
     Active Substance: ACETAMINOPHEN\OXYCODONE HYDROCHLORIDE
  3. AZOPT [Concomitant]
     Active Substance: BRINZOLAMIDE
  4. NITROGLYCERIN 2% [Concomitant]
  5. BRIMONIDINE 0.2% [Concomitant]
  6. PAROXETINE [Concomitant]
     Active Substance: PAROXETINE\PAROXETINE HYDROCHLORIDE
  7. SSD 1% [Concomitant]
  8. BONIVA [Concomitant]
     Active Substance: IBANDRONATE SODIUM
  9. CARISOPRODOL. [Concomitant]
     Active Substance: CARISOPRODOL
  10. WARFARIN [Concomitant]
     Active Substance: WARFARIN
  11. NEXIUM [Concomitant]
     Active Substance: ESOMEPRAZOLE MAGNESIUM
  12. VITAMIN C [Concomitant]
     Active Substance: ASCORBIC ACID
  13. LETAIRIS [Suspect]
     Active Substance: AMBRISENTAN
     Indication: PULMONARY ARTERIAL HYPERTENSION
     Route: 048
     Dates: start: 20090409
  14. LEFLUNOMIDE. [Concomitant]
     Active Substance: LEFLUNOMIDE
  15. MAGNESIUM OXIDE. [Concomitant]
     Active Substance: MAGNESIUM OXIDE
  16. SPIRINOLACTONE-HCTZ [Concomitant]
  17. METFORMIN HCL [Concomitant]
     Active Substance: METFORMIN HYDROCHLORIDE
  18. METOPROLOL [Concomitant]
     Active Substance: METOPROLOL
  19. ALLOPURINOL. [Concomitant]
     Active Substance: ALLOPURINOL
  20. FISH OIL [Concomitant]
     Active Substance: FISH OIL
  21. CARTIA XT [Concomitant]
     Active Substance: DILTIAZEM HYDROCHLORIDE
  22. SIMVASTATIN. [Concomitant]
     Active Substance: SIMVASTATIN
  23. SINGULAIR [Concomitant]
     Active Substance: MONTELUKAST SODIUM
  24. PREDNISONE. [Concomitant]
     Active Substance: PREDNISONE
  25. GABAPENTIN. [Concomitant]
     Active Substance: GABAPENTIN
  26. CALCIUM + VITAMIN D [Concomitant]
     Active Substance: CALCIUM\VITAMIN D
  27. FUROSEMIDE. [Concomitant]
     Active Substance: FUROSEMIDE
  28. QVAR [Concomitant]
     Active Substance: BECLOMETHASONE DIPROPIONATE
  29. MULTIVITAMIN [Concomitant]
     Active Substance: VITAMINS

REACTIONS (7)
  - Dizziness [Unknown]
  - Diplopia [Recovered/Resolved]
  - Pneumonia [Recovered/Resolved]
  - Somnolence [Unknown]
  - Malaise [Unknown]
  - Dizziness [Recovered/Resolved]
  - Dyspnoea [Unknown]
